FAERS Safety Report 4979330-0 (Version None)
Quarter: 2006Q2

REPORT INFORMATION
  Report Type: 
  Country: None (occurrence: None)
  Receive Date: 20060421
  Receipt Date: 20060117
  Transmission Date: 20061013
  Serious: Yes (Hospitalization)
  Sender: FDA-Public Use
  Company Number: US-MERCK-0601USA02152

PATIENT
  Age: 63 Year
  Sex: Male
  Weight: 68 kg

DRUGS (13)
  1. VIOXX [Suspect]
     Indication: ARTHRITIS
     Route: 048
     Dates: start: 20030901, end: 20040901
  2. BUMEX [Concomitant]
     Indication: POLYURIA
     Route: 065
  3. PACERONE [Concomitant]
     Indication: ARRHYTHMIA
     Route: 065
  4. VERAPAMIL [Concomitant]
     Route: 065
  5. AMOXICILLIN [Concomitant]
     Indication: NASOPHARYNGITIS
     Route: 065
  6. ARTHROTEC [Concomitant]
     Indication: ARRHYTHMIA
     Route: 065
  7. PLAVIX [Concomitant]
     Indication: ANTICOAGULANT THERAPY
     Route: 065
  8. PRAVACHOL [Concomitant]
     Indication: BLOOD CHOLESTEROL
     Route: 065
  9. CEPHALEXIN [Concomitant]
     Indication: NASOPHARYNGITIS
     Route: 065
  10. AMIODARONE [Concomitant]
     Indication: ARRHYTHMIA
     Route: 065
  11. NADOLOL [Concomitant]
     Indication: TOOTH EXTRACTION
     Route: 065
  12. ASPIRIN [Concomitant]
     Indication: MYOCARDIAL INFARCTION
     Route: 065
     Dates: start: 19960101
  13. COUMADIN [Concomitant]
     Indication: ANTICOAGULANT THERAPY
     Route: 065
     Dates: start: 19960101

REACTIONS (6)
  - BLOOD CHOLESTEROL ABNORMAL [None]
  - HEART RATE IRREGULAR [None]
  - MYOCARDIAL INFARCTION [None]
  - NERVOUSNESS [None]
  - RHEUMATOID ARTHRITIS [None]
  - TOOTH DISORDER [None]
